FAERS Safety Report 22365895 (Version 1)
Quarter: 2023Q2

REPORT INFORMATION
  Report Type: Spontaneous
  Country: CA (occurrence: CA)
  Receive Date: 20230525
  Receipt Date: 20230525
  Transmission Date: 20230721
  Serious: Yes (Other)
  Sender: FDA-Public Use
  Company Number: None

PATIENT
  Age: 44 Year
  Sex: Female

DRUGS (2)
  1. METHOTREXATE SODIUM [Suspect]
     Active Substance: METHOTREXATE SODIUM
     Indication: Product used for unknown indication
     Route: 058
  2. VEDOLIZUMAB [Concomitant]
     Active Substance: VEDOLIZUMAB
     Indication: Crohn^s disease

REACTIONS (23)
  - Abdominal pain [Recovered/Resolved]
  - Atelectasis [Recovered/Resolved]
  - Burning sensation [Recovered/Resolved]
  - Chest pain [Recovered/Resolved]
  - Condition aggravated [Recovered/Resolved]
  - Decreased appetite [Recovered/Resolved]
  - Defaecation urgency [Recovered/Resolved]
  - Dizziness [Recovered/Resolved]
  - Drug ineffective [Recovered/Resolved]
  - Dysphagia [Recovered/Resolved]
  - Dyspnoea [Recovered/Resolved]
  - Flatulence [Recovered/Resolved]
  - Haematochezia [Recovered/Resolved]
  - Malaise [Recovered/Resolved]
  - Mucous stools [Recovered/Resolved]
  - Nausea [Recovered/Resolved]
  - Oesophageal pain [Recovered/Resolved]
  - Oesophageal spasm [Recovered/Resolved]
  - Pain [Recovered/Resolved]
  - Product use issue [Recovered/Resolved]
  - Vomiting [Recovered/Resolved]
  - Weight decreased [Recovered/Resolved]
  - Wound [Recovered/Resolved]
